FAERS Safety Report 13910799 (Version 2)
Quarter: 2017Q4

REPORT INFORMATION
  Report Type: Spontaneous
  Country: US (occurrence: US)
  Receive Date: 20170828
  Receipt Date: 20171013
  Transmission Date: 20180320
  Serious: No
  Sender: FDA-Public Use
  Company Number: PHEH2017US026367

PATIENT
  Sex: Female
  Weight: 65 kg

DRUGS (7)
  1. LEVALBUTEROL. [Suspect]
     Active Substance: LEVALBUTEROL
     Indication: PRODUCT USED FOR UNKNOWN INDICATION
     Dosage: UNK
     Route: 065
  2. LEVOTHYROXINE. [Concomitant]
     Active Substance: LEVOTHYROXINE
     Indication: THYROID DISORDER
     Dosage: 0.025 MG, QD
     Route: 048
  3. ALLEGRA [Concomitant]
     Active Substance: FEXOFENADINE HYDROCHLORIDE
     Indication: THYROID DISORDER
     Dosage: 180 MG, QD
     Route: 048
  4. MONTELUKAST [Concomitant]
     Active Substance: MONTELUKAST SODIUM
     Indication: THYROID DISORDER
     Dosage: 10 MG, QD
     Route: 048
  5. BUDESONIDE SANDOZ [Suspect]
     Active Substance: BUDESONIDE
     Indication: PNEUMONIA
     Dosage: 1 MG, UNK (20 MINUTES INHALATION)
     Route: 055
  6. BUDESONIDE SANDOZ [Suspect]
     Active Substance: BUDESONIDE
     Indication: PNEUMONITIS
  7. BUDESONIDE SANDOZ [Suspect]
     Active Substance: BUDESONIDE
     Indication: PULMONARY CONGESTION

REACTIONS (2)
  - Product use issue [Unknown]
  - Drug ineffective [Unknown]
